FAERS Safety Report 20146176 (Version 1)
Quarter: 2021Q4

REPORT INFORMATION
  Report Type: Spontaneous
  Country: US (occurrence: None)
  Receive Date: 20211203
  Receipt Date: 20211203
  Transmission Date: 20220303
  Serious: Yes (Hospitalization)
  Sender: FDA-Public Use
  Company Number: None

PATIENT
  Sex: Female

DRUGS (14)
  1. CAPECITABINE [Suspect]
     Active Substance: CAPECITABINE
     Indication: Breast cancer
     Dosage: FREQUENCY : TWICE A DAY;?
     Route: 048
     Dates: start: 20210716
  2. NOVOLOG [Concomitant]
     Active Substance: INSULIN ASPART
  3. POTASSIUM [Concomitant]
     Active Substance: POTASSIUM
  4. LASIX [Concomitant]
     Active Substance: FUROSEMIDE
  5. WARFARIN [Concomitant]
     Active Substance: WARFARIN
  6. METOPROLOL [Concomitant]
     Active Substance: METOPROLOL
  7. DIGOXIN [Concomitant]
     Active Substance: DIGOXIN
  8. ARANESP [Concomitant]
     Active Substance: DARBEPOETIN ALFA
  9. XGEVA [Concomitant]
  10. BASAGLAR [Concomitant]
     Active Substance: INSULIN GLARGINE
  11. METFORMIN [Concomitant]
     Active Substance: METFORMIN HYDROCHLORIDE
  12. ANASTROZOLE [Concomitant]
     Active Substance: ANASTROZOLE
  13. ASPIRIN [Concomitant]
     Active Substance: ASPIRIN
  14. TYLENOL [Concomitant]
     Active Substance: ACETAMINOPHEN

REACTIONS (1)
  - Hospitalisation [None]
